FAERS Safety Report 7775805-X (Version None)
Quarter: 2011Q3

REPORT INFORMATION
  Report Type: 
  Country: None (occurrence: None)
  Receive Date: 20110921
  Receipt Date: 20110912
  Transmission Date: 20111222
  Serious: Yes (Other)
  Sender: FDA-Public Use
  Company Number: 2011SP042968

PATIENT
  Age: 55 Year
  Sex: Male

DRUGS (1)
  1. DESLORATADINE [Suspect]
     Indication: RHINITIS ALLERGIC
     Dosage: 1 DF;QD
     Dates: start: 20110101, end: 20110101

REACTIONS (1)
  - MUSCLE SPASMS [None]
